FAERS Safety Report 7800039-X (Version None)
Quarter: 2011Q4

REPORT INFORMATION
  Report Type: 
  Country: None (occurrence: None)
  Receive Date: 20111006
  Receipt Date: 20110926
  Transmission Date: 20120403
  Serious: Yes (Other)
  Sender: FDA-Public Use
  Company Number: US-JNJFOC-20110911109

PATIENT
  Sex: Female
  Weight: 79.38 kg

DRUGS (5)
  1. LEVOTHYROXINE SODIUM [Concomitant]
     Indication: THYROID DISORDER
     Route: 048
     Dates: start: 20010101
  2. INVEGA SUSTENNA [Suspect]
     Indication: BIPOLAR DISORDER
     Route: 030
     Dates: start: 20100901, end: 20110801
  3. COLESTIPOL HYDROCHLORIDE [Concomitant]
     Indication: DIARRHOEA
     Route: 048
     Dates: start: 20090101
  4. VALIUM [Concomitant]
     Indication: ANXIETY
     Route: 048
     Dates: start: 20100901
  5. RISPERDAL CONSTA [Suspect]
     Indication: BIPOLAR DISORDER
     Route: 030
     Dates: start: 20040101, end: 20100101

REACTIONS (7)
  - LETHARGY [None]
  - WITHDRAWAL SYNDROME [None]
  - DYSARTHRIA [None]
  - GRIP STRENGTH DECREASED [None]
  - HEADACHE [None]
  - WEIGHT INCREASED [None]
  - SEXUAL DYSFUNCTION [None]
